FAERS Safety Report 8546475-8 (Version None)
Quarter: 2012Q3

REPORT INFORMATION
  Report Type: 
  Country: None (occurrence: None)
  Receive Date: 20120727
  Receipt Date: 20120112
  Transmission Date: 20120928
  Serious: No
  Sender: FDA-Public Use
  Company Number: US-ASTRAZENECA-2012SE02413

PATIENT
  Age: 50 Year
  Sex: Male
  Weight: 76.2 kg

DRUGS (3)
  1. SEROQUEL [Suspect]
     Indication: SLEEP DISORDER
     Dosage: 400 MG AT NIGHT AND 25MG IN THE MORNING
     Route: 048
  2. SEROQUEL [Suspect]
     Indication: DEPRESSION
     Dosage: 400 MG AT NIGHT AND 25MG IN THE MORNING
     Route: 048
  3. HIV MEDICATION [Concomitant]

REACTIONS (3)
  - MALAISE [None]
  - OFF LABEL USE [None]
  - DRUG DOSE OMISSION [None]
